FAERS Safety Report 9393429 (Version 1)
Quarter: 2013Q3

REPORT INFORMATION
  Report Type: Report from Study
  Country: DE (occurrence: DE)
  Receive Date: 20130710
  Receipt Date: 20130710
  Transmission Date: 20140515
  Serious: Yes (Hospitalization)
  Sender: FDA-Public Use
  Company Number: DE-ABBOTT-13P-062-1116238-00

PATIENT
  Sex: Female

DRUGS (15)
  1. HUMIRA [Suspect]
     Indication: RHEUMATOID ARTHRITIS
     Route: 058
     Dates: start: 20080806, end: 201304
  2. HUMIRA [Suspect]
     Dates: start: 20130605
  3. CARVEDILOL [Concomitant]
     Indication: PRODUCT USED FOR UNKNOWN INDICATION
  4. COAPROVEL [Concomitant]
     Indication: PRODUCT USED FOR UNKNOWN INDICATION
  5. NIFEDIPIN [Concomitant]
     Indication: PRODUCT USED FOR UNKNOWN INDICATION
  6. ASA [Concomitant]
     Indication: PRODUCT USED FOR UNKNOWN INDICATION
  7. L-THYROXIN [Concomitant]
     Indication: HYPOTHYROIDISM
  8. SPIRIVA [Concomitant]
     Indication: PRODUCT USED FOR UNKNOWN INDICATION
  9. SIMVASTATIN [Concomitant]
     Indication: PRODUCT USED FOR UNKNOWN INDICATION
  10. ZOLOFT [Concomitant]
     Indication: PRODUCT USED FOR UNKNOWN INDICATION
  11. PANTOZOL [Concomitant]
     Indication: PRODUCT USED FOR UNKNOWN INDICATION
  12. VENTOLAIR [Concomitant]
     Indication: PRODUCT USED FOR UNKNOWN INDICATION
  13. CIPROBAY [Concomitant]
     Indication: PRODUCT USED FOR UNKNOWN INDICATION
  14. HYLO-COMOD [Concomitant]
     Indication: PRODUCT USED FOR UNKNOWN INDICATION
  15. TIMOHEXAL [Concomitant]
     Indication: PRODUCT USED FOR UNKNOWN INDICATION

REACTIONS (1)
  - Glaucoma [Recovered/Resolved]
